APPROVED DRUG PRODUCT: NEXIUM
Active Ingredient: ESOMEPRAZOLE MAGNESIUM
Strength: EQ 20MG BASE
Dosage Form/Route: CAPSULE, DELAYED REL PELLETS;ORAL
Application: N021153 | Product #001 | TE Code: AB
Applicant: ASTRAZENECA PHARMACEUTICALS LP
Approved: Feb 20, 2001 | RLD: Yes | RS: No | Type: RX